FAERS Safety Report 21104491 (Version 1)
Quarter: 2022Q3

REPORT INFORMATION
  Report Type: Spontaneous
  Country: US (occurrence: US)
  Receive Date: 20220720
  Receipt Date: 20220720
  Transmission Date: 20221026
  Serious: No
  Sender: FDA-Public Use
  Company Number: US-AMNEAL PHARMACEUTICALS-2021-AMRX-02176

PATIENT
  Sex: Female
  Weight: 46.27 kg

DRUGS (16)
  1. ESTRADIOL [Suspect]
     Active Substance: ESTRADIOL
     Indication: Atrophic vulvovaginitis
     Route: 065
  2. ESTRADIOL [Suspect]
     Active Substance: ESTRADIOL
     Indication: Urinary tract infection
  3. ESTRADIOL [Suspect]
     Active Substance: ESTRADIOL
     Indication: Vulvovaginal dryness
  4. ESTRADIOL [Suspect]
     Active Substance: ESTRADIOL
     Indication: Dyspareunia
  5. VAGIFEM [Suspect]
     Active Substance: ESTRADIOL
     Indication: Atrophic vulvovaginitis
     Dosage: 10 MICROGRAM 2TIMES PER WEEK
     Route: 065
  6. VAGIFEM [Suspect]
     Active Substance: ESTRADIOL
     Indication: Urinary tract infection
  7. VAGIFEM [Suspect]
     Active Substance: ESTRADIOL
     Indication: Dyspareunia
  8. VAGIFEM [Suspect]
     Active Substance: ESTRADIOL
     Indication: Vulvovaginal dryness
  9. VIVELLE-DOT [Suspect]
     Active Substance: ESTRADIOL
     Indication: Atrophic vulvovaginitis
     Dosage: 25 MILLIGRAM
     Route: 065
  10. VIVELLE-DOT [Suspect]
     Active Substance: ESTRADIOL
     Indication: Urinary tract infection
  11. VIVELLE-DOT [Suspect]
     Active Substance: ESTRADIOL
     Indication: Vulvovaginal dryness
  12. VIVELLE-DOT [Suspect]
     Active Substance: ESTRADIOL
     Indication: Dyspareunia
  13. ESTRADIOL [Suspect]
     Active Substance: ESTRADIOL
     Indication: Atrophic vulvovaginitis
     Dosage: 0.025MG PER DAY
     Route: 062
  14. ESTRADIOL [Suspect]
     Active Substance: ESTRADIOL
     Indication: Urinary tract infection
  15. ESTRADIOL [Suspect]
     Active Substance: ESTRADIOL
     Indication: Vulvovaginal dryness
  16. ESTRADIOL [Suspect]
     Active Substance: ESTRADIOL
     Indication: Dyspareunia

REACTIONS (1)
  - Drug ineffective [Unknown]
